FAERS Safety Report 11406891 (Version 1)
Quarter: 2015Q3

REPORT INFORMATION
  Report Type: Spontaneous
  Country: CL (occurrence: CL)
  Receive Date: 20150821
  Receipt Date: 20150821
  Transmission Date: 20151125
  Serious: Yes (Other)
  Sender: FDA-Public Use
  Company Number: CL-PFIZER INC-2015280492

PATIENT
  Age: 86 Year
  Sex: Male

DRUGS (2)
  1. XALATAN [Suspect]
     Active Substance: LATANOPROST
     Dosage: UNK
  2. XALACOM [Suspect]
     Active Substance: LATANOPROST\TIMOLOL MALEATE
     Dosage: UNK

REACTIONS (1)
  - Deafness [Not Recovered/Not Resolved]
